FAERS Safety Report 8087459-6 (Version None)
Quarter: 2012Q1

REPORT INFORMATION
  Report Type: 
  Country: None (occurrence: None)
  Receive Date: 20120128
  Receipt Date: 20110527
  Transmission Date: 20120608
  Serious: No
  Sender: FDA-Public Use
  Company Number: US-ABBOTT-11P-163-0728035-00

PATIENT
  Sex: Male

DRUGS (3)
  1. PREDNISONE TAB [Concomitant]
     Indication: CROHN'S DISEASE
  2. HUMIRA [Suspect]
     Indication: CROHN'S DISEASE
     Route: 058
     Dates: start: 20100901, end: 20110501
  3. HUMIRA [Suspect]
     Route: 058
     Dates: start: 20110501

REACTIONS (7)
  - BACTERIAL INFECTION [None]
  - SKIN PAPILLOMA [None]
  - CATARACT [None]
  - INJECTION SITE PAIN [None]
  - RASH [None]
  - DEVICE MALFUNCTION [None]
  - CROHN'S DISEASE [None]
